FAERS Safety Report 9256870 (Version 2)
Quarter: 2013Q2

REPORT INFORMATION
  Report Type: Spontaneous
  Country: US (occurrence: None)
  Receive Date: 20130423
  Receipt Date: 20130510
  Transmission Date: 20140414
  Serious: Yes (Hospitalization)
  Sender: FDA-Public Use
  Company Number: JPI-P-031228

PATIENT
  Age: 41 Year
  Sex: Female
  Weight: 96.16 kg

DRUGS (2)
  1. XYREM [Suspect]
     Indication: CATAPLEXY
     Route: 048
     Dates: start: 201206
  2. IRON [Concomitant]

REACTIONS (5)
  - Foreign body sensation in eyes [None]
  - Vision blurred [None]
  - Sinusitis [None]
  - Abnormal loss of weight [None]
  - Adverse event [None]
